FAERS Safety Report 4641076-6 (Version None)
Quarter: 2005Q2

REPORT INFORMATION
  Report Type: 
  Country: None (occurrence: None)
  Receive Date: 20050419
  Receipt Date: 20050419
  Transmission Date: 20051028
  Serious: Yes (Hospitalization)
  Sender: FDA-Public Use
  Company Number: None

PATIENT
  Sex: Male
  Weight: 109.7705 kg

DRUGS (8)
  1. GEMZAR [Suspect]
  2. IRESSA [Suspect]
  3. FLUOROURACIL [Suspect]
  4. REGLAN [Concomitant]
  5. VILKASE [Concomitant]
  6. METFORMIN HCL [Concomitant]
  7. LANTIS [Concomitant]
  8. ASPIRIN [Concomitant]

REACTIONS (3)
  - CATHETER RELATED COMPLICATION [None]
  - DEHYDRATION [None]
  - INTESTINAL OBSTRUCTION [None]
